FAERS Safety Report 14287442 (Version 1)
Quarter: 2017Q4

REPORT INFORMATION
  Report Type: Spontaneous
  Country: US (occurrence: US)
  Receive Date: 20171214
  Receipt Date: 20171214
  Transmission Date: 20180321
  Serious: No
  Sender: FDA-Public Use
  Company Number: US-MYLANLABS-2017M1074472

PATIENT
  Sex: Female

DRUGS (2)
  1. EMSAM [Suspect]
     Active Substance: SELEGILINE
     Indication: PRODUCT USED FOR UNKNOWN INDICATION
     Dosage: 6 MG, UNK
     Route: 062
  2. EMSAM [Suspect]
     Active Substance: SELEGILINE
     Dosage: 12 MG, UNK

REACTIONS (1)
  - Asthenia [Unknown]
